FAERS Safety Report 20573529 (Version 1)
Quarter: 2022Q1

REPORT INFORMATION
  Report Type: Spontaneous
  Country: US (occurrence: None)
  Receive Date: 20220309
  Receipt Date: 20220309
  Transmission Date: 20220424
  Serious: Yes (Other)
  Sender: FDA-Public Use
  Company Number: None

PATIENT
  Age: 73 Year
  Sex: Female
  Weight: 49.9 kg

DRUGS (1)
  1. VORICONAZOLE [Suspect]
     Active Substance: VORICONAZOLE
     Indication: Aspergillus infection
     Dosage: FREQUENCY : AS DIRECTED;?
     Route: 048
     Dates: start: 20220203, end: 20220205

REACTIONS (3)
  - Hallucination [None]
  - Sleep disorder [None]
  - Insomnia [None]

NARRATIVE: CASE EVENT DATE: 20220203
